FAERS Safety Report 12197915 (Version 2)
Quarter: 2016Q2

REPORT INFORMATION
  Report Type: Spontaneous
  Country: US (occurrence: US)
  Receive Date: 20160322
  Receipt Date: 20160502
  Transmission Date: 20160815
  Serious: No
  Sender: FDA-Public Use
  Company Number: US-JNJFOC-20160227099

PATIENT
  Sex: Female
  Weight: 100.25 kg

DRUGS (1)
  1. INVOKANA [Suspect]
     Active Substance: CANAGLIFLOZIN
     Indication: DIABETES MELLITUS
     Route: 048
     Dates: start: 2014

REACTIONS (5)
  - Blood glucose increased [Unknown]
  - Adverse event [Unknown]
  - Visual acuity reduced [Unknown]
  - Skin lesion [Unknown]
  - Polydipsia [Not Recovered/Not Resolved]

NARRATIVE: CASE EVENT DATE: 2014
